FAERS Safety Report 21740204 (Version 1)
Quarter: 2022Q4

REPORT INFORMATION
  Report Type: Spontaneous
  Country: PT (occurrence: PT)
  Receive Date: 20221216
  Receipt Date: 20221216
  Transmission Date: 20230113
  Serious: Yes (Other)
  Sender: FDA-Public Use
  Company Number: None

PATIENT
  Age: 45 Year
  Sex: Female

DRUGS (1)
  1. FREMANEZUMAB [Suspect]
     Active Substance: FREMANEZUMAB
     Indication: Migraine prophylaxis
     Dosage: 225 MG ONCE A MONTH, FREQUENCY TIME 1 MONTHS DURATION  6 MONTHS, FORM STRENGTH 225 MG
     Dates: start: 20211222, end: 20220715

REACTIONS (2)
  - Injection site warmth [Recovered/Resolved]
  - Injection site erythema [Recovered/Resolved]

NARRATIVE: CASE EVENT DATE: 20220715
